FAERS Safety Report 9362209 (Version 3)
Quarter: 2013Q3

REPORT INFORMATION
  Report Type: Spontaneous
  Country: US (occurrence: US)
  Receive Date: 20130622
  Receipt Date: 20130821
  Transmission Date: 20140515
  Serious: Yes (Other)
  Sender: FDA-Public Use
  Company Number: US-ACCORD-018125

PATIENT
  Age: 51 Year
  Sex: Male
  Weight: 77.27 kg

DRUGS (3)
  1. SIMVASTATIN [Suspect]
     Indication: BLOOD CHOLESTEROL
     Route: 048
     Dates: start: 20130602, end: 20130606
  2. CLARITIN-D [Concomitant]
     Indication: HYPERSENSITIVITY
     Dosage: FREQUENCY: PRN IN FALL
     Route: 048
  3. NASONEX [Concomitant]
     Indication: HYPERSENSITIVITY
     Dosage: DOSE FORM: NASAL AEROSOL + FREQUENCY: PRN IN FALL,
     Route: 048

REACTIONS (4)
  - Cystitis [Not Recovered/Not Resolved]
  - Pain in extremity [Recovered/Resolved]
  - Arthralgia [Recovered/Resolved]
  - Abdominal pain upper [Not Recovered/Not Resolved]
